FAERS Safety Report 4700659-5 (Version None)
Quarter: 2005Q2

REPORT INFORMATION
  Report Type: 
  Country: None (occurrence: None)
  Receive Date: 20050627
  Receipt Date: 20050216
  Transmission Date: 20051028
  Serious: Yes (Hospitalization, Other)
  Sender: FDA-Public Use
  Company Number: US-MERCK-0502USA02351

PATIENT
  Age: 35 Year
  Sex: Male
  Weight: 90 kg

DRUGS (5)
  1. VIOXX [Suspect]
     Indication: PAIN
     Route: 048
     Dates: start: 20010612, end: 20010701
  2. VIOXX [Suspect]
     Indication: ARTHRITIS
     Route: 048
     Dates: start: 20010612, end: 20010701
  3. MOTRIN [Concomitant]
     Indication: PAIN
     Route: 065
     Dates: start: 19890101
  4. TYLENOL [Concomitant]
     Indication: PAIN
     Route: 065
     Dates: start: 19890101
  5. ANALGESIC OR ANESTHETIC (UNSPECIFIED) [Concomitant]
     Route: 065
     Dates: start: 19890101

REACTIONS (12)
  - CARDIAC FAILURE CONGESTIVE [None]
  - CARDIOVASCULAR DISORDER [None]
  - CEREBROVASCULAR ACCIDENT [None]
  - DEPRESSION [None]
  - DYSPNOEA [None]
  - HYPERTENSION [None]
  - MIGRAINE [None]
  - MUSCLE SPASMS [None]
  - MYOCARDIAL INFARCTION [None]
  - RENAL DISORDER [None]
  - STRESS [None]
  - VISION BLURRED [None]
